FAERS Safety Report 6639027-8 (Version None)
Quarter: 2010Q1

REPORT INFORMATION
  Report Type: 
  Country: None (occurrence: None)
  Receive Date: 20100317
  Receipt Date: 20100305
  Transmission Date: 20100710
  Serious: Yes (Other)
  Sender: FDA-Public Use
  Company Number: ES-EISAI INC.-E2090-01103-SPO-ES

PATIENT
  Age: 41 Year
  Sex: Female
  Weight: 55 kg

DRUGS (2)
  1. ZONEGRAN [Suspect]
     Indication: MIGRAINE
     Dosage: UNKNOWN
     Route: 048
     Dates: start: 20090408, end: 20090401
  2. ZONEGRAN [Suspect]
     Route: 048
     Dates: start: 20090401, end: 20091123

REACTIONS (1)
  - INTERSTITIAL LUNG DISEASE [None]
